FAERS Safety Report 13828325 (Version 7)
Quarter: 2020Q1

REPORT INFORMATION
  Report Type: Spontaneous
  Country: US (occurrence: US)
  Receive Date: 20170803
  Receipt Date: 20200302
  Transmission Date: 20200409
  Serious: Yes (Other)
  Sender: FDA-Public Use
  Company Number: US-PFIZER INC-2017332572

PATIENT
  Age: 74 Year
  Sex: Male
  Weight: 63.49 kg

DRUGS (3)
  1. LYRICA [Suspect]
     Active Substance: PREGABALIN
     Indication: NEURALGIA
     Dosage: 50 MG, 2X/DAY (IN THE MORNING AND AT NIGHT)
     Route: 048
  2. LYRICA [Suspect]
     Active Substance: PREGABALIN
     Indication: SCIATICA
     Dosage: 50 MG, 2X/DAY (IN THE MORNING AND BEFORE BED)
     Dates: start: 2017
  3. LYRICA [Suspect]
     Active Substance: PREGABALIN
     Indication: PAIN

REACTIONS (13)
  - Pain in extremity [Unknown]
  - Headache [Recovered/Resolved]
  - Stress [Not Recovered/Not Resolved]
  - Fatigue [Unknown]
  - Spinal fracture [Unknown]
  - Dry mouth [Not Recovered/Not Resolved]
  - Somnolence [Unknown]
  - Product administration error [Unknown]
  - Product storage error [Unknown]
  - Pain [Not Recovered/Not Resolved]
  - Product blister packaging issue [Unknown]
  - Withdrawal syndrome [Unknown]
  - Diarrhoea [Recovered/Resolved]

NARRATIVE: CASE EVENT DATE: 2017
